FAERS Safety Report 4400005-0 (Version None)
Quarter: 2004Q3

REPORT INFORMATION
  Report Type: 
  Country: None (occurrence: None)
  Receive Date: 20040714
  Receipt Date: 20040629
  Transmission Date: 20050211
  Serious: Yes (Death, Life-Threatening)
  Sender: FDA-Public Use
  Company Number: 2002AP04318

PATIENT
  Age: 74 Year
  Sex: Female

DRUGS (7)
  1. IRESSA [Suspect]
     Indication: LUNG SQUAMOUS CELL CARCINOMA STAGE UNSPECIFIED
     Dosage: 250 MG DAILY PO
     Route: 048
     Dates: start: 20020924, end: 20021116
  2. RADIATION THERAPY [Concomitant]
  3. SULBACTAM [Concomitant]
  4. CEFOPERAZONE SODIUM [Concomitant]
  5. RED CELLS-MAP [Concomitant]
  6. PACLITAXEL [Concomitant]
  7. CARBOPLATIN [Concomitant]

REACTIONS (13)
  - BACK PAIN [None]
  - BLOOD LACTATE DEHYDROGENASE INCREASED [None]
  - C-REACTIVE PROTEIN INCREASED [None]
  - CHEST X-RAY ABNORMAL [None]
  - DIARRHOEA [None]
  - DISSEMINATED INTRAVASCULAR COAGULATION [None]
  - GENERAL PHYSICAL HEALTH DETERIORATION [None]
  - HAEMOGLOBIN DECREASED [None]
  - HAEMOPTYSIS [None]
  - INTERSTITIAL LUNG DISEASE [None]
  - METASTASIS [None]
  - PELVIC NEOPLASM [None]
  - PNEUMONIA [None]
